FAERS Safety Report 9249610 (Version 1)
Quarter: 2013Q2

REPORT INFORMATION
  Report Type: Spontaneous
  Country: US (occurrence: US)
  Receive Date: 20130423
  Receipt Date: 20130423
  Transmission Date: 20140414
  Serious: Yes (Hospitalization)
  Sender: FDA-Public Use
  Company Number: US-BRISTOL-MYERS SQUIBB COMPANY-17384793

PATIENT
  Age: 87 Year
  Sex: Female

DRUGS (21)
  1. YERVOY [Suspect]
     Indication: MALIGNANT MELANOMA
     Route: 042
     Dates: start: 20130121
  2. TYLENOL [Concomitant]
  3. NORVASC [Concomitant]
  4. LOMOTIL [Concomitant]
  5. IRON SUPPLEMENT [Concomitant]
  6. LASIX [Concomitant]
  7. VICODIN [Concomitant]
     Dosage: TAB.?1DF: 5/500MG TABS
  8. LACTINEX [Concomitant]
  9. LISINOPRIL [Concomitant]
  10. IMODIUM [Concomitant]
  11. LORAZEPAM [Concomitant]
     Indication: ANXIETY
  12. METOPROLOL [Concomitant]
  13. MULTIVITAMIN [Concomitant]
  14. PRILOSEC [Concomitant]
  15. ZOFRAN [Concomitant]
     Indication: NAUSEA
  16. AFRIN [Concomitant]
  17. NORMAL SALINE [Concomitant]
     Dosage: 1DF: PRN
     Route: 045
  18. VESICARE [Concomitant]
  19. ALDACTONE [Concomitant]
  20. GLYCERIN SUPPOSITORIES [Concomitant]
  21. KENALOG [Concomitant]
     Indication: RASH

REACTIONS (1)
  - Enterocolitis [Recovering/Resolving]
